FAERS Safety Report 19652350 (Version 1)
Quarter: 2021Q3

REPORT INFORMATION
  Report Type: Spontaneous
  Country: CO (occurrence: CO)
  Receive Date: 20210803
  Receipt Date: 20210803
  Transmission Date: 20211014
  Serious: Yes (Hospitalization)
  Sender: FDA-Public Use
  Company Number: CO-PFIZER INC-202100933344

PATIENT
  Age: 64 Year
  Sex: Female

DRUGS (1)
  1. REAMPLA [Suspect]
     Active Substance: PALBOCICLIB
     Dosage: 100 MG
     Route: 048

REACTIONS (4)
  - Vomiting [Unknown]
  - Malaise [Unknown]
  - Illness [Unknown]
  - Discouragement [Unknown]
